FAERS Safety Report 6845195-5 (Version None)
Quarter: 2010Q3

REPORT INFORMATION
  Report Type: 
  Country: None (occurrence: None)
  Receive Date: 20100715
  Receipt Date: 20070816
  Transmission Date: 20110219
  Serious: No
  Sender: FDA-Public Use
  Company Number: US-PFIZER INC-2007068955

PATIENT
  Sex: Male
  Weight: 84.1 kg

DRUGS (5)
  1. CHANTIX [Suspect]
     Indication: SMOKING CESSATION THERAPY
     Dates: start: 20070811
  2. COREG [Concomitant]
  3. LANOXIN [Concomitant]
  4. TRAZODONE HYDROCHLORIDE [Concomitant]
  5. VITAMINS [Concomitant]

REACTIONS (3)
  - DYSGEUSIA [None]
  - FATIGUE [None]
  - HEADACHE [None]
